FAERS Safety Report 8549410-1 (Version None)
Quarter: 2012Q3

REPORT INFORMATION
  Report Type: 
  Country: None (occurrence: None)
  Receive Date: 20120730
  Receipt Date: 20120725
  Transmission Date: 20120928
  Serious: Yes (Other)
  Sender: FDA-Public Use
  Company Number: US-PFIZER INC-2012180893

PATIENT
  Sex: Male
  Weight: 92.517 kg

DRUGS (1)
  1. PRISTIQ [Suspect]
     Indication: ANXIETY
     Dosage: 50 MG,DAILY
     Dates: start: 20120619, end: 20120720

REACTIONS (1)
  - GASTROINTESTINAL HAEMORRHAGE [None]
